FAERS Safety Report 8585264-5 (Version None)
Quarter: 2012Q3

REPORT INFORMATION
  Report Type: 
  Country: None (occurrence: None)
  Receive Date: 20120810
  Receipt Date: 20120803
  Transmission Date: 20120928
  Serious: No
  Sender: FDA-Public Use
  Company Number: AT-B.I. PHARMACEUTICALS,INC./RIDGEFIELD-2012-AP-00644AP

PATIENT
  Age: 72 Year
  Sex: Male
  Weight: 110 kg

DRUGS (9)
  1. TRAJENTA [Suspect]
     Indication: TYPE 2 DIABETES MELLITUS
     Dosage: 5 MG
     Route: 048
     Dates: start: 20120331, end: 20120704
  2. LASIX [Concomitant]
     Dosage: 40 MG
     Route: 048
  3. UROSIN [Concomitant]
     Dosage: 150 MG
     Route: 048
  4. MARCUMAR [Concomitant]
     Dosage: ACCORDING TO MARCUMAR PASS
     Route: 048
  5. RENITEC PLUS [Concomitant]
     Dosage: 1X
     Route: 048
  6. TENORMIN [Concomitant]
     Dosage: 50 MG
     Route: 048
  7. FERROGRAD FOL [Concomitant]
     Dosage: 1X
     Route: 048
  8. BEZASTAD [Concomitant]
     Dosage: 400 MG
     Route: 048
  9. ENAC [Concomitant]
     Dosage: 10 MG
     Route: 048

REACTIONS (1)
  - RASH GENERALISED [None]
